FAERS Safety Report 5031321-X (Version None)
Quarter: 2006Q2

REPORT INFORMATION
  Report Type: 
  Country: None (occurrence: None)
  Receive Date: 20060616
  Receipt Date: 20060530
  Transmission Date: 20061013
  Serious: Yes (Other)
  Sender: FDA-Public Use
  Company Number: GB-2006-013127

PATIENT
  Age: 53 Year
  Sex: Male

DRUGS (3)
  1. FLUDARA [Suspect]
     Indication: LYMPHOMA
     Dosage: 8 CYCLES, ORAL
     Route: 048
  2. DEXAMETHASONE [Suspect]
     Indication: LYMPHOMA
     Dosage: ORAL
     Route: 048
  3. MITOXANTRONE [Suspect]
     Indication: LYMPHOMA
     Dosage: INTRAVENOUS
     Route: 042

REACTIONS (2)
  - OSTEONECROSIS [None]
  - STEROID WITHDRAWAL SYNDROME [None]
